FAERS Safety Report 11838075 (Version 2)
Quarter: 2016Q1

REPORT INFORMATION
  Report Type: Report from Study
  Country: NL (occurrence: NL)
  Receive Date: 20151215
  Receipt Date: 20160106
  Transmission Date: 20160525
  Serious: Yes (Hospitalization, Disabling)
  Sender: FDA-Public Use
  Company Number: NL-JNJFOC-20151205119

PATIENT
  Age: 60 Year
  Sex: Male
  Weight: 105.7 kg

DRUGS (2)
  1. STELARA [Suspect]
     Active Substance: USTEKINUMAB
     Indication: PSORIASIS
     Route: 058
     Dates: start: 20130801
  2. CARBASALATE CALCIUM [Concomitant]
     Active Substance: CARBASALATE
     Route: 065

REACTIONS (1)
  - Basal ganglia stroke [Recovering/Resolving]

NARRATIVE: CASE EVENT DATE: 20151118
